FAERS Safety Report 7307550-9 (Version None)
Quarter: 2011Q1

REPORT INFORMATION
  Report Type: 
  Country: None (occurrence: None)
  Receive Date: 20110211
  Receipt Date: 20110203
  Transmission Date: 20110831
  Serious: Yes (Death, Hospitalization)
  Sender: FDA-Public Use
  Company Number: 112565

PATIENT
  Age: 20 Year
  Sex: Female

DRUGS (2)
  1. CYTARABINE [Suspect]
     Indication: LUPUS NEPHRITIS
  2. ETOPOSIDE [Suspect]

REACTIONS (12)
  - SEPSIS [None]
  - HAEMATURIA [None]
  - HYPERTENSION [None]
  - POSTERIOR REVERSIBLE ENCEPHALOPATHY SYNDROME [None]
  - HUMAN POLYOMAVIRUS INFECTION [None]
  - STEVENS-JOHNSON SYNDROME [None]
  - FEBRILE NEUTROPENIA [None]
  - FUNGAEMIA [None]
  - CENTRAL NERVOUS SYSTEM LYMPHOMA [None]
  - NEOPLASM MALIGNANT [None]
  - TOXICITY TO VARIOUS AGENTS [None]
  - STEM CELL TRANSPLANT [None]
